FAERS Safety Report 22028860 (Version 2)
Quarter: 2023Q1

REPORT INFORMATION
  Report Type: Spontaneous
  Country: ES (occurrence: ES)
  Receive Date: 20230223
  Receipt Date: 20230225
  Transmission Date: 20230418
  Serious: Yes (Other)
  Sender: FDA-Public Use
  Company Number: ES-SAMSUNG BIOEPIS-SB-2023-03937

PATIENT
  Age: 36 Year
  Sex: Female

DRUGS (2)
  1. ADALIMUMAB [Suspect]
     Active Substance: ADALIMUMAB
     Indication: Central serous chorioretinopathy
     Dosage: UNK
     Route: 065
  2. ADALIMUMAB [Suspect]
     Active Substance: ADALIMUMAB
     Indication: Hypothyroidism

REACTIONS (6)
  - Acute febrile neutrophilic dermatosis [Recovering/Resolving]
  - Autoimmune disorder [Recovering/Resolving]
  - Neutrophilic dermatosis [Recovering/Resolving]
  - C-reactive protein increased [Unknown]
  - Lymphopenia [Unknown]
  - Off label use [Unknown]
